FAERS Safety Report 8107043-5 (Version None)
Quarter: 2012Q1

REPORT INFORMATION
  Report Type: 
  Country: None (occurrence: None)
  Receive Date: 20120202
  Receipt Date: 20120125
  Transmission Date: 20120608
  Serious: Yes (Hospitalization)
  Sender: FDA-Public Use
  Company Number: US-BAYER-2011-122310

PATIENT
  Age: 29 Year
  Sex: Female

DRUGS (4)
  1. ZYRTEC [Concomitant]
     Dosage: UNK UNK, PRN
  2. IRON [Concomitant]
  3. IBUPROFEN [Concomitant]
     Indication: PAIN
  4. YAZ [Suspect]
     Dosage: UNK
     Dates: start: 20090401, end: 20091001

REACTIONS (9)
  - INJURY [None]
  - ANHEDONIA [None]
  - PAIN [None]
  - EMOTIONAL DISTRESS [None]
  - ANXIETY [None]
  - PULMONARY EMBOLISM [None]
  - DEEP VEIN THROMBOSIS [None]
  - CHEST PAIN [None]
  - GENERAL PHYSICAL HEALTH DETERIORATION [None]
